FAERS Safety Report 21303749 (Version 1)
Quarter: 2022Q3

REPORT INFORMATION
  Report Type: Spontaneous
  Country: US (occurrence: None)
  Receive Date: 20220907
  Receipt Date: 20220907
  Transmission Date: 20221027
  Serious: No
  Sender: FDA-Public Use
  Company Number: None

PATIENT
  Age: 47 Year
  Sex: Female
  Weight: 69.4 kg

DRUGS (1)
  1. RISPERDAL CONSTA [Suspect]
     Active Substance: RISPERIDONE
     Indication: Mental disorder
     Dosage: FREQUENCY : EVERY OTHER WEEK;?

REACTIONS (3)
  - Skin disorder [None]
  - Adverse drug reaction [None]
  - Memory impairment [None]
